FAERS Safety Report 5211979-2 (Version None)
Quarter: 2007Q1

REPORT INFORMATION
  Report Type: 
  Country: None (occurrence: None)
  Receive Date: 20070118
  Receipt Date: 20070115
  Transmission Date: 20070707
  Serious: Yes (Hospitalization)
  Sender: FDA-Public Use
  Company Number: JP-GLAXOSMITHKLINE-B0451907A

PATIENT
  Age: 74 Year
  Sex: Male

DRUGS (11)
  1. SEREVENT [Suspect]
     Indication: ASTHMA
     Dosage: 50MCG TWICE PER DAY
     Route: 055
     Dates: start: 20061119
  2. KIPRES [Concomitant]
     Indication: ASTHMA
     Route: 048
     Dates: start: 20030404
  3. HOKUNALIN [Concomitant]
     Route: 062
  4. FLUTIDE [Concomitant]
     Route: 055
  5. BEPRICOR [Concomitant]
     Indication: ATRIAL FIBRILLATION
     Route: 048
  6. CIBENOL [Concomitant]
     Indication: ATRIAL FIBRILLATION
     Route: 048
  7. LENDORMIN [Concomitant]
     Indication: INSOMNIA
     Route: 048
  8. URSO [Concomitant]
     Indication: HEPATITIS C
     Route: 048
  9. BLOPRESS [Concomitant]
     Indication: HYPERTENSION
     Route: 048
     Dates: start: 20050708
  10. NORVASC [Concomitant]
     Indication: HYPERTENSION
     Route: 048
     Dates: start: 20060310
  11. NOVOLIN N [Concomitant]
     Indication: DIABETES MELLITUS
     Route: 058

REACTIONS (3)
  - DYSPNOEA [None]
  - EMPHYSEMA [None]
  - PNEUMOTHORAX [None]
